FAERS Safety Report 9846837 (Version 1)
Quarter: 2014Q1

REPORT INFORMATION
  Report Type: Spontaneous
  Country: DE (occurrence: DE)
  Receive Date: 20140127
  Receipt Date: 20140127
  Transmission Date: 20141002
  Serious: Yes (Other)
  Sender: FDA-Public Use
  Company Number: DE-BRISTOL-MYERS SQUIBB COMPANY-20047882

PATIENT
  Age: 79 Year
  Sex: Male

DRUGS (1)
  1. FORXIGA [Suspect]
     Indication: DIABETES MELLITUS
     Route: 048
     Dates: start: 20131206, end: 20131219

REACTIONS (2)
  - Syncope [Unknown]
  - Dizziness [Recovered/Resolved]
